FAERS Safety Report 9534689 (Version 2)
Quarter: 2013Q3

REPORT INFORMATION
  Report Type: Spontaneous
  Country: US (occurrence: US)
  Receive Date: 20130918
  Receipt Date: 20130918
  Transmission Date: 20140515
  Serious: No
  Sender: FDA-Public Use
  Company Number: US-PURDUE-USA-2011-0078585

PATIENT
  Sex: Male
  Weight: 106.58 kg

DRUGS (1)
  1. BUTRANS [Suspect]
     Indication: ANALGESIC THERAPY
     Dosage: 5 MCG, Q1H
     Route: 062

REACTIONS (5)
  - Inadequate analgesia [Unknown]
  - Drug effect decreased [Unknown]
  - Breakthrough pain [Unknown]
  - Product quality issue [Unknown]
  - Device leakage [Unknown]
